FAERS Safety Report 9745210 (Version 1)
Quarter: 2013Q4

REPORT INFORMATION
  Report Type: Spontaneous
  Country: US (occurrence: US)
  Receive Date: 20131211
  Receipt Date: 20131211
  Transmission Date: 20140711
  Serious: Yes (Death)
  Sender: FDA-Public Use
  Company Number: US-PFIZER INC-2013352047

PATIENT
  Age: 55 Year
  Sex: Female

DRUGS (3)
  1. SUTENT [Suspect]
     Indication: RENAL CANCER
     Dosage: 37.5 MG ALTERNATING WITH 50 MG QD (DAILY)
     Dates: start: 20130515
  2. SUTENT [Suspect]
  3. SUTENT [Suspect]

REACTIONS (2)
  - Disease progression [Fatal]
  - Renal cancer [Fatal]
